FAERS Safety Report 6936568-0 (Version None)
Quarter: 2010Q3

REPORT INFORMATION
  Report Type: 
  Country: None (occurrence: None)
  Receive Date: 20100823
  Receipt Date: 20100817
  Transmission Date: 20110219
  Serious: Yes (Other)
  Sender: FDA-Public Use
  Company Number: US-ROCHE-717724

PATIENT
  Age: 30 Year
  Sex: Male
  Weight: 142 kg

DRUGS (6)
  1. CLONAZEPAM [Suspect]
     Indication: ANXIETY
     Dosage: UNKNOWN DOSE AS NEEDED
     Route: 065
     Dates: start: 20060101, end: 20090101
  2. GEODON [Suspect]
     Indication: SCHIZOPHRENIA
     Dosage: AT BED TIME
     Route: 065
     Dates: start: 20060101
  3. GEODON [Suspect]
     Dosage: BOTH 60 MG DOSES AT NIGHT
     Route: 065
  4. ATENOLOL [Suspect]
     Dosage: OTHER INDICATION: HEART RATE PROBLEM
     Route: 065
     Dates: start: 20060101
  5. LISINOPRIL AND HYDROCHLOROTHIAZIDE [Suspect]
     Dosage: DOSE: 20/12.5 MG
     Route: 065
     Dates: start: 20060101
  6. ZOLOFT [Concomitant]

REACTIONS (2)
  - TYPE 2 DIABETES MELLITUS [None]
  - WEIGHT INCREASED [None]
